FAERS Safety Report 9994707 (Version 1)
Quarter: 2014Q1

REPORT INFORMATION
  Report Type: Spontaneous
  Country: FR (occurrence: FR)
  Receive Date: 20140311
  Receipt Date: 20140311
  Transmission Date: 20141002
  Serious: Yes (Hospitalization)
  Sender: FDA-Public Use
  Company Number: FR-ASTRAZENECA-2014SE15657

PATIENT
  Age: 16420 Day
  Sex: Male

DRUGS (6)
  1. XEROQUEL [Suspect]
     Route: 048
     Dates: end: 20140118
  2. XEROQUEL [Suspect]
     Dosage: 20 TABLETS OF 300 MG
     Route: 048
     Dates: start: 20140119, end: 20140119
  3. ETHANOL (ALCOHOL) [Suspect]
     Dosage: 3 GLASSES OF BEER
     Route: 048
     Dates: start: 20140119, end: 20140119
  4. ANAFRANIL [Concomitant]
     Dosage: 75 MG, 1.5 DF PER DAY
  5. LERCAN [Concomitant]
  6. PRITOR [Concomitant]

REACTIONS (5)
  - Toxicity to various agents [Unknown]
  - Hypotension [Recovered/Resolved]
  - Somnolence [Recovered/Resolved]
  - Tachycardia [Recovered/Resolved]
  - Psychomotor hyperactivity [Recovered/Resolved]
